FAERS Safety Report 17010443 (Version 1)
Quarter: 2019Q4

REPORT INFORMATION
  Report Type: Spontaneous
  Country: US (occurrence: US)
  Receive Date: 20191108
  Receipt Date: 20191108
  Transmission Date: 20200122
  Serious: Yes (Life-Threatening, Hospitalization, Other)
  Sender: FDA-Public Use
  Company Number: US-JNJFOC-20191101050

PATIENT
  Age: 30 Year
  Sex: Female
  Weight: 135 kg

DRUGS (2)
  1. DIPHENHYDRAMINE HYDROCHLORIDE. [Concomitant]
     Active Substance: DIPHENHYDRAMINE HYDROCHLORIDE
     Indication: PRODUCT USED FOR UNKNOWN INDICATION
     Route: 048
  2. PARACETAMOL [Suspect]
     Active Substance: ACETAMINOPHEN
     Indication: SUICIDE ATTEMPT
     Dosage: IN TOTAL
     Route: 048

REACTIONS (5)
  - Areflexia [Unknown]
  - Mental status changes [Unknown]
  - Unresponsive to stimuli [Unknown]
  - Intentional overdose [Unknown]
  - Suicide attempt [Unknown]
